FAERS Safety Report 16073107 (Version 1)
Quarter: 2019Q1

REPORT INFORMATION
  Report Type: Spontaneous
  Country: US (occurrence: US)
  Receive Date: 20190314
  Receipt Date: 20190314
  Transmission Date: 20190418
  Serious: No
  Sender: FDA-Public Use
  Company Number: US-VIFOR (INTERNATIONAL) INC.-VIT-2019-02183

PATIENT
  Sex: Female

DRUGS (23)
  1. VELTASSA [Suspect]
     Active Substance: PATIROMER
     Indication: HYPERKALAEMIA
     Route: 048
     Dates: start: 20160311
  2. HYDRALAZINE HCL [Concomitant]
     Active Substance: HYDRALAZINE HYDROCHLORIDE
  3. SODIUM POLYSTYRENE SULFONATE. [Concomitant]
     Active Substance: SODIUM POLYSTYRENE SULFONATE
  4. CENTRUM SILVER [Concomitant]
     Active Substance: MINERALS\VITAMINS
  5. CITRACAL PLUS D3 [Concomitant]
  6. TRULICITY [Concomitant]
     Active Substance: DULAGLUTIDE
  7. ATENOLOL. [Concomitant]
     Active Substance: ATENOLOL
  8. CRESTOR [Concomitant]
     Active Substance: ROSUVASTATIN CALCIUM
  9. HUMALOG [Concomitant]
     Active Substance: INSULIN LISPRO
  10. LANTUS [Concomitant]
     Active Substance: INSULIN GLARGINE
  11. NEURONTIN [Concomitant]
     Active Substance: GABAPENTIN
  12. PROTONIX [Concomitant]
     Active Substance: PANTOPRAZOLE SODIUM
  13. XANAX [Concomitant]
     Active Substance: ALPRAZOLAM
  14. CYMBALTA [Concomitant]
     Active Substance: DULOXETINE HYDROCHLORIDE
  15. WELLBUTRIN SR [Concomitant]
     Active Substance: BUPROPION HYDROCHLORIDE
  16. BENADRYL ALLERGY [Concomitant]
     Active Substance: DIPHENHYDRAMINE HYDROCHLORIDE
  17. ASPIRIN LOW DOSE [Concomitant]
     Active Substance: ASPIRIN
     Dosage: LOW DOSE
  18. LOVAZA [Concomitant]
     Active Substance: OMEGA-3-ACID ETHYL ESTERS
  19. LACTULOSE. [Concomitant]
     Active Substance: LACTULOSE
  20. PLAVIX [Concomitant]
     Active Substance: CLOPIDOGREL BISULFATE
  21. VITAMIN E [Concomitant]
     Active Substance: .ALPHA.-TOCOPHEROL
  22. PROBIOTIC [Concomitant]
     Active Substance: PROBIOTICS NOS
  23. REQUIP [Concomitant]
     Active Substance: ROPINIROLE HYDROCHLORIDE

REACTIONS (2)
  - Urinary tract infection [Unknown]
  - Product dose omission [Unknown]
